FAERS Safety Report 15423229 (Version 1)
Quarter: 2018Q3

REPORT INFORMATION
  Report Type: Spontaneous
  Country: US (occurrence: US)
  Receive Date: 20180920
  Receipt Date: 20180920
  Transmission Date: 20181010
  Serious: Yes (Other)
  Sender: FDA-Public Use
  Company Number: None

PATIENT
  Age: 20 Year
  Sex: Male

DRUGS (2)
  1. CLONAZEPAM 0.5MG TABS [Suspect]
     Active Substance: CLONAZEPAM
     Indication: AGITATION
  2. CLONAZEPAM 0.5MG TABS [Suspect]
     Active Substance: CLONAZEPAM
     Indication: SEIZURE
     Dosage: ?          OTHER FREQUENCY:1/2 QAM + 3 QHS;OTHER ROUTE:NG?

REACTIONS (6)
  - Product substitution issue [None]
  - Agitation [None]
  - Hyperventilation [None]
  - Restlessness [None]
  - Withdrawal syndrome [None]
  - Hyperhidrosis [None]

NARRATIVE: CASE EVENT DATE: 20180920
